FAERS Safety Report 5413066-7 (Version None)
Quarter: 2007Q3

REPORT INFORMATION
  Report Type: 
  Country: None (occurrence: None)
  Receive Date: 20070813
  Receipt Date: 20070801
  Transmission Date: 20080115
  Serious: Yes (Other)
  Sender: FDA-Public Use
  Company Number: MX-PFIZER INC-2007062458

PATIENT
  Sex: Female
  Weight: 53 kg

DRUGS (4)
  1. CHAMPIX [Suspect]
     Indication: EX-SMOKER
     Route: 048
     Dates: start: 20070621, end: 20070725
  2. GLYBURIDE [Concomitant]
     Route: 048
  3. METFORMIN HCL [Concomitant]
     Route: 048
  4. ALL OTHER THERAPEUTIC PRODUCTS [Concomitant]
     Dosage: FREQ:WHEN REQUIRED
     Route: 048

REACTIONS (1)
  - HYPERGLYCAEMIA [None]
